FAERS Safety Report 5949695-1 (Version None)
Quarter: 2008Q4

REPORT INFORMATION
  Report Type: 
  Country: None (occurrence: None)
  Receive Date: 20081021
  Receipt Date: 20080505
  Transmission Date: 20090506
  Serious: Yes (Other)
  Sender: FDA-Public Use
  Company Number: HQWYE892913JUL06

PATIENT
  Age: 59 Year
  Sex: Female

DRUGS (2)
  1. PREMARIN [Suspect]
     Dosage: .625 MG, 156 MOS. (13 YEARS)
     Dates: start: 19800101, end: 19930701
  2. PROVERA [Suspect]

REACTIONS (1)
  - BREAST CANCER [None]
